FAERS Safety Report 15871216 (Version 1)
Quarter: 2019Q1

REPORT INFORMATION
  Report Type: Spontaneous
  Country: CN (occurrence: CN)
  Receive Date: 20190126
  Receipt Date: 20190126
  Transmission Date: 20190417
  Serious: Yes (Death)
  Sender: FDA-Public Use
  Company Number: CN-IMPAX LABORATORIES, LLC-2019-IPXL-00296

PATIENT

DRUGS (2)
  1. SALINE                             /00075401/ [Suspect]
     Active Substance: SODIUM CHLORIDE
     Indication: NEPHROPROTECTIVE THERAPY
     Dosage: 1 MICROGRAM/KILOGRAM, EVERY HOUR, (ISOTONIC)
     Route: 041
  2. ISOSORBIDE DINITRATE ER [Suspect]
     Active Substance: ISOSORBIDE DINITRATE
     Indication: NEPHROPROTECTIVE THERAPY
     Dosage: 2 MILLIGRAM, EVERY HOUR
     Route: 041

REACTIONS (1)
  - Adverse event [Fatal]
